FAERS Safety Report 13836548 (Version 2)
Quarter: 2017Q3

REPORT INFORMATION
  Report Type: Report from Study
  Country: NL (occurrence: NL)
  Receive Date: 20170804
  Receipt Date: 20170815
  Transmission Date: 20171127
  Serious: Yes (Hospitalization, Other)
  Sender: FDA-Public Use
  Company Number: NL-SEATTLE GENETICS-2017SGN01858

PATIENT
  Age: 54 Year
  Sex: Male
  Weight: 104 kg

DRUGS (8)
  1. DEXAMETHASONE. [Suspect]
     Active Substance: DEXAMETHASONE
     Indication: HODGKIN^S DISEASE
     Dosage: 40 MG, UNK
     Route: 042
     Dates: start: 20170407, end: 20170525
  2. MELPHALAN. [Suspect]
     Active Substance: MELPHALAN
     Indication: HODGKIN^S DISEASE
     Dosage: 310 MG, UNK
     Route: 042
     Dates: start: 20170705, end: 20170705
  3. ETOPOSIDE. [Suspect]
     Active Substance: ETOPOSIDE
     Indication: HODGKIN^S DISEASE
     Dosage: 220 MG, UNK
     Route: 042
     Dates: start: 20170701, end: 20170705
  4. CYTARABINE. [Suspect]
     Active Substance: CYTARABINE
     Dosage: 220 MG, UNK
     Route: 042
     Dates: start: 20170701, end: 20170705
  5. BRENTUXIMAB VEDOTIN [Suspect]
     Active Substance: BRENTUXIMAB VEDOTIN
     Indication: HODGKIN^S DISEASE
     Dosage: 180 MG, UNK
     Route: 042
     Dates: start: 20170407, end: 20170524
  6. CISPLATIN. [Suspect]
     Active Substance: CISPLATIN
     Indication: HODGKIN^S DISEASE
     Dosage: 225 MG, UNK
     Route: 042
     Dates: start: 20170407, end: 20170525
  7. CYTARABINE. [Suspect]
     Active Substance: CYTARABINE
     Indication: HODGKIN^S DISEASE
     Dosage: 4300 MG, UNK
     Route: 042
     Dates: start: 20170408, end: 20170526
  8. CARMUSTINE [Suspect]
     Active Substance: CARMUSTINE
     Indication: HODGKIN^S DISEASE
     Dosage: 669.33 MG, UNK
     Route: 042
     Dates: start: 20170630, end: 20170630

REACTIONS (1)
  - Venoocclusive disease [Not Recovered/Not Resolved]

NARRATIVE: CASE EVENT DATE: 20170724
